FAERS Safety Report 10386945 (Version 1)
Quarter: 2014Q3

REPORT INFORMATION
  Report Type: Spontaneous
  Country: US (occurrence: None)
  Receive Date: 20140814
  Receipt Date: 20140814
  Transmission Date: 20150326
  Serious: No
  Sender: FDA-Public Use
  Company Number: None

PATIENT
  Age: 59 Year
  Sex: Female
  Weight: 83.92 kg

DRUGS (1)
  1. DULOXETINE [Suspect]
     Active Substance: DULOXETINE
     Indication: DEPRESSION
     Route: 048
     Dates: start: 20140802, end: 20140813

REACTIONS (5)
  - Pollakiuria [None]
  - Aphthous stomatitis [None]
  - Oropharyngeal pain [None]
  - Somnolence [None]
  - Foaming at mouth [None]

NARRATIVE: CASE EVENT DATE: 20140813
